FAERS Safety Report 11656831 (Version 1)
Quarter: 2015Q4

REPORT INFORMATION
  Report Type: Spontaneous
  Country: US (occurrence: US)
  Receive Date: 20151023
  Receipt Date: 20151023
  Transmission Date: 20160304
  Serious: No
  Sender: FDA-Public Use
  Company Number: US-PFIZER INC-2015347745

PATIENT
  Sex: Female

DRUGS (1)
  1. CYTOMEL [Suspect]
     Active Substance: LIOTHYRONINE SODIUM
     Dosage: 5 MG,AS NEEDED (TWO OR THREE TIMES A DAY)
     Route: 048

REACTIONS (1)
  - Glossodynia [Unknown]

NARRATIVE: CASE EVENT DATE: 2015
